FAERS Safety Report 7311292-3 (Version None)
Quarter: 2011Q1

REPORT INFORMATION
  Report Type: 
  Country: None (occurrence: None)
  Receive Date: 20110224
  Receipt Date: 20110223
  Transmission Date: 20110831
  Serious: Yes (Other)
  Sender: FDA-Public Use
  Company Number: US-PFIZER INC-2011039694

PATIENT
  Sex: Male
  Weight: 89.342 kg

DRUGS (3)
  1. IMURAN [Suspect]
     Indication: INTERSTITIAL LUNG DISEASE
     Dosage: 50 MG, 1X/DAY
  2. CELEBREX [Suspect]
     Indication: MUSCULOSKELETAL PAIN
     Dosage: 200 MG, 2X/DAY
     Route: 048
     Dates: start: 20110201
  3. PREDNISONE [Suspect]
     Indication: INTERSTITIAL LUNG DISEASE
     Dosage: 40 MG, 1X/DAY

REACTIONS (4)
  - HYPERTENSION [None]
  - RENAL DISORDER [None]
  - DRUG INEFFECTIVE [None]
  - LIVER DISORDER [None]
